FAERS Safety Report 4415174-6 (Version None)
Quarter: 2004Q3

REPORT INFORMATION
  Report Type: 
  Country: None (occurrence: None)
  Receive Date: 20040730
  Receipt Date: 20040716
  Transmission Date: 20050211
  Serious: Yes (Other)
  Sender: FDA-Public Use
  Company Number: K200401075

PATIENT
  Age: 53 Year
  Sex: Female
  Weight: 96.1 kg

DRUGS (3)
  1. LEVOXYL [Suspect]
     Indication: HYPOTHYROIDISM
     Dosage: SEE IMAGE, ORAL
     Route: 048
     Dates: start: 20020101, end: 20040601
  2. LEVOXYL [Suspect]
     Indication: HYPOTHYROIDISM
     Dosage: SEE IMAGE, ORAL
     Route: 048
     Dates: start: 20040601
  3. ASPIRIN [Concomitant]

REACTIONS (12)
  - ANXIETY [None]
  - BLOOD FOLATE DECREASED [None]
  - BLOOD THYROID STIMULATING HORMONE DECREASED [None]
  - BLOOD THYROID STIMULATING HORMONE INCREASED [None]
  - DYSPNOEA [None]
  - FATIGUE [None]
  - HYPOAESTHESIA [None]
  - INSOMNIA [None]
  - IRRITABILITY [None]
  - LOW DENSITY LIPOPROTEIN INCREASED [None]
  - NEUROPATHY [None]
  - WEIGHT DECREASED [None]
